FAERS Safety Report 9523066 (Version 1)
Quarter: 2013Q3

REPORT INFORMATION
  Report Type: Spontaneous
  Country: US (occurrence: US)
  Receive Date: 20130913
  Receipt Date: 20130913
  Transmission Date: 20140515
  Serious: No
  Sender: FDA-Public Use
  Company Number: US-BAYER-2013-111065

PATIENT
  Sex: Female

DRUGS (2)
  1. BETASERON [Suspect]
  2. BETAJECT LITE [Suspect]

REACTIONS (2)
  - Injection site pain [None]
  - Needle issue [None]
